FAERS Safety Report 7065536-6 (Version None)
Quarter: 2010Q4

REPORT INFORMATION
  Report Type: 
  Country: None (occurrence: None)
  Receive Date: 20101027
  Receipt Date: 20101021
  Transmission Date: 20110411
  Serious: Yes (Life-Threatening, Hospitalization)
  Sender: FDA-Public Use
  Company Number: US-BAYER-201037931NA

PATIENT
  Age: 57 Year
  Sex: Female

DRUGS (1)
  1. AVELOX [Suspect]
     Indication: BRONCHITIS
     Dosage: TOTAL DAILY DOSE: 400 MG
     Route: 048
     Dates: start: 20101018, end: 20101018

REACTIONS (3)
  - ANAPHYLACTIC REACTION [None]
  - DYSPNOEA [None]
  - URTICARIA [None]
